FAERS Safety Report 25302817 (Version 4)
Quarter: 2025Q2

REPORT INFORMATION
  Report Type: Report from Study
  Country: US (occurrence: US)
  Receive Date: 20250512
  Receipt Date: 20250612
  Transmission Date: 20250716
  Serious: Yes (Hospitalization, Other)
  Sender: SUNOVION
  Company Number: US-SUMITOMO PHARMA SWITZERLAND GMBH-2025SPA004685

PATIENT

DRUGS (3)
  1. ORGOVYX [Suspect]
     Active Substance: RELUGOLIX
     Indication: Prostate cancer
     Dosage: 360 MG, SINGLE
     Route: 048
     Dates: start: 20250226, end: 20250226
  2. ORGOVYX [Suspect]
     Active Substance: RELUGOLIX
     Dosage: 120 MG, QD
     Route: 048
     Dates: start: 20250227
  3. ALFUZOSIN [Suspect]
     Active Substance: ALFUZOSIN
     Indication: Product used for unknown indication
     Route: 065

REACTIONS (3)
  - Loss of consciousness [Unknown]
  - Dehydration [Unknown]
  - Dysuria [Unknown]
